FAERS Safety Report 13307633 (Version 1)
Quarter: 2017Q1

REPORT INFORMATION
  Report Type: Spontaneous
  Country: CN (occurrence: CN)
  Receive Date: 20170308
  Receipt Date: 20170308
  Transmission Date: 20170428
  Serious: Yes (Other)
  Sender: FDA-Public Use
  Company Number: CN-TAKEDA-2017TUS005026

PATIENT
  Age: 57 Year
  Sex: Female

DRUGS (1)
  1. COLCHICINE. [Suspect]
     Active Substance: COLCHICINE
     Indication: SJOGREN^S SYNDROME
     Dosage: UNK, TID
     Route: 065

REACTIONS (2)
  - Liver injury [Unknown]
  - Off label use [Unknown]
